FAERS Safety Report 15008376 (Version 2)
Quarter: 2018Q2

REPORT INFORMATION
  Report Type: Spontaneous
  Country: CA (occurrence: CA)
  Receive Date: 20180613
  Receipt Date: 20180625
  Transmission Date: 20180711
  Serious: Yes (Other)
  Sender: FDA-Public Use
  Company Number: PHHY2018CA019418

PATIENT
  Age: 32 Year
  Sex: Female

DRUGS (1)
  1. MOMETASONE SANDOZ [Suspect]
     Active Substance: MOMETASONE
     Indication: SINUSITIS
     Dosage: UNK
     Route: 065

REACTIONS (7)
  - Dyspnoea [Unknown]
  - Hypoaesthesia [Unknown]
  - Headache [Unknown]
  - Insomnia [Unknown]
  - Administration site laceration [Unknown]
  - Haemorrhage [Unknown]
  - Pain [Not Recovered/Not Resolved]
